FAERS Safety Report 19751173 (Version 2)
Quarter: 2021Q3

REPORT INFORMATION
  Report Type: Report from Study
  Country: CO (occurrence: CO)
  Receive Date: 20210826
  Receipt Date: 20210927
  Transmission Date: 20211014
  Serious: Yes (Other)
  Sender: FDA-Public Use
  Company Number: CO-ASTELLAS-2021US013174

PATIENT
  Age: 63 Year
  Sex: Male

DRUGS (3)
  1. LOSARTAN. [Concomitant]
     Active Substance: LOSARTAN
     Indication: PRODUCT USED FOR UNKNOWN INDICATION
     Dosage: UNK UNK, UNKNOWN FREQ.
     Route: 065
  2. ENZALUTAMIDE [Suspect]
     Active Substance: ENZALUTAMIDE
     Indication: HORMONE-REFRACTORY PROSTATE CANCER
     Route: 048
     Dates: start: 20210309
  3. COVID?19 VACCINE NOS. [Suspect]
     Active Substance: COVID-19 VACCINE NOS
     Indication: COVID-19 IMMUNISATION
     Dosage: UNK UNK, UNKNOWN FREQ.
     Route: 065

REACTIONS (12)
  - Asthenia [Not Recovered/Not Resolved]
  - Pain [Unknown]
  - Dysuria [Recovering/Resolving]
  - Haematuria [Not Recovered/Not Resolved]
  - Bone pain [Unknown]
  - Hyperhidrosis [Recovering/Resolving]
  - Dizziness [Recovered/Resolved]
  - Hypoglycaemia [Recovered/Resolved]
  - Genital pain [Not Recovered/Not Resolved]
  - Fatigue [Unknown]
  - Prostatic specific antigen increased [Not Recovered/Not Resolved]
  - General physical health deterioration [Unknown]

NARRATIVE: CASE EVENT DATE: 202104
